FAERS Safety Report 10157264 (Version 2)
Quarter: 2014Q2

REPORT INFORMATION
  Report Type: Spontaneous
  Country: ES (occurrence: ES)
  Receive Date: 20140507
  Receipt Date: 20140513
  Transmission Date: 20141212
  Serious: Yes (Life-Threatening, Hospitalization, Other)
  Sender: FDA-Public Use
  Company Number: ES-TEVA-479069ISR

PATIENT
  Age: 55 Year
  Sex: Male

DRUGS (1)
  1. MODIODAL 100 MG COMPRIMIDOS [Suspect]
     Indication: NARCOLEPSY
     Dosage: 400 MILLIGRAM DAILY;
     Route: 048
     Dates: start: 20120621, end: 20140411

REACTIONS (1)
  - Subarachnoid haemorrhage [Recovered/Resolved]
